FAERS Safety Report 10249113 (Version 1)
Quarter: 2014Q2

REPORT INFORMATION
  Report Type: Other
  Country: AT (occurrence: AT)
  Receive Date: 20140620
  Receipt Date: 20140620
  Transmission Date: 20141212
  Serious: Yes (Hospitalization)
  Sender: FDA-Public Use
  Company Number: AT-LUPIN PHARMACEUTICALS INC.-2014-00912

PATIENT
  Age: 64 Year
  Sex: Male

DRUGS (7)
  1. CIPROFLOXACIN [Suspect]
     Indication: INFECTION
     Route: 065
  2. CIPROFLOXACIN [Suspect]
     Route: 065
  3. TIGECYCLINE [Concomitant]
     Indication: INFECTION
     Route: 065
  4. TIGECYCLINE [Concomitant]
     Route: 065
  5. FOSFOMYCIN [Concomitant]
     Indication: INFECTION
     Route: 065
  6. FOSFOMYCIN [Concomitant]
     Route: 065
  7. ATORVASTATIN [Concomitant]
     Indication: PRODUCT USED FOR UNKNOWN INDICATION
     Route: 065

REACTIONS (1)
  - Rhabdomyolysis [Recovered/Resolved]
